FAERS Safety Report 8821549 (Version 1)
Quarter: 2012Q4

REPORT INFORMATION
  Report Type: 
  Country: US (occurrence: US)
  Receive Date: 20121002
  Receipt Date: 20121002
  Transmission Date: 20130627
  Serious: No
  Sender: FDA-Public Use
  Company Number: US-009507513-1210USA000739

PATIENT

DRUGS (2)
  1. DULERA [Suspect]
     Indication: ASTHMA
     Dosage: 200 Microgram, Inhalation
  2. DULERA [Suspect]
     Dosage: 100 Microgram, Inhaler
     Dates: start: 201209

REACTIONS (1)
  - Dysphonia [Recovering/Resolving]
